FAERS Safety Report 20843816 (Version 1)
Quarter: 2022Q2

REPORT INFORMATION
  Report Type: Spontaneous
  Country: DE (occurrence: DE)
  Receive Date: 20220518
  Receipt Date: 20220518
  Transmission Date: 20220721
  Serious: Yes (Other)
  Sender: FDA-Public Use
  Company Number: DE-EMA-DD-20200102-kumarvn_P-105140

PATIENT
  Sex: Male
  Weight: 92 kg

DRUGS (20)
  1. CISPLATIN\CYTARABINE\DEXAMETHASONE [Suspect]
     Active Substance: CISPLATIN\CYTARABINE\DEXAMETHASONE
     Indication: Diffuse large B-cell lymphoma
     Dosage: 3RD LINE TREATMENT, ACCORDING TO R-DHAP REGIME, 2 CYCLES, DURATION 22 DAYS
     Route: 065
     Dates: start: 20190111, end: 20190201
  2. CISPLATIN\CYTARABINE\DEXAMETHASONE [Suspect]
     Active Substance: CISPLATIN\CYTARABINE\DEXAMETHASONE
     Indication: Diffuse large B-cell lymphoma
     Dosage: 3RD LINE TREATMENT, ACCORDING TO R-DHAP REGIME, 2 CYCLES, DURATION 22 DAYS
     Route: 065
     Dates: start: 20190111, end: 20190201
  3. CISPLATIN\CYTARABINE\DEXAMETHASONE [Suspect]
     Active Substance: CISPLATIN\CYTARABINE\DEXAMETHASONE
     Indication: Diffuse large B-cell lymphoma
     Dosage: 3RD LINE TREATMENT, ACCORDING TO R-DHAP REGIME, 2 CYCLES, DURATION 22 DAYS
     Route: 065
     Dates: start: 20190111, end: 20190201
  4. CYCLOPHOSPHAMIDE\DOXORUBICIN\PREDNISONE\VINCRISTINE [Suspect]
     Active Substance: CYCLOPHOSPHAMIDE\DOXORUBICIN\PREDNISONE\VINCRISTINE
     Indication: Diffuse large B-cell lymphoma
     Dosage: 1ST LINE TREATMENT, ACCORDING TO R-CHOP REGIME, 6 CYCLES, DURATION : 4 MONTHS
     Route: 065
     Dates: start: 201803, end: 201807
  5. CYCLOPHOSPHAMIDE\DOXORUBICIN\PREDNISONE\VINCRISTINE [Suspect]
     Active Substance: CYCLOPHOSPHAMIDE\DOXORUBICIN\PREDNISONE\VINCRISTINE
     Indication: Diffuse large B-cell lymphoma
     Dosage: 1ST LINE TREATMENT, ACCORDING TO R-CHOP REGIME, 6 CYCLES, DURATION : 4 MONTHS
     Route: 065
     Dates: start: 201803, end: 201807
  6. CYCLOPHOSPHAMIDE\DOXORUBICIN\PREDNISONE\VINCRISTINE [Suspect]
     Active Substance: CYCLOPHOSPHAMIDE\DOXORUBICIN\PREDNISONE\VINCRISTINE
     Indication: Diffuse large B-cell lymphoma
     Dosage: 1ST LINE TREATMENT, ACCORDING TO R-CHOP REGIME, 6 CYCLES, DURATION : 4 MONTHS
     Route: 065
     Dates: start: 201803, end: 201807
  7. CYCLOPHOSPHAMIDE\DOXORUBICIN\PREDNISONE\VINCRISTINE [Suspect]
     Active Substance: CYCLOPHOSPHAMIDE\DOXORUBICIN\PREDNISONE\VINCRISTINE
     Indication: Diffuse large B-cell lymphoma
     Dosage: 1ST LINE TREATMENT, ACCORDING TO R-CHOP REGIME, 6 CYCLES, DURATION : 4 MONTHS
     Route: 065
     Dates: start: 201803, end: 201807
  8. CARBOPLATIN [Suspect]
     Active Substance: CARBOPLATIN
     Indication: Diffuse large B-cell lymphoma
     Dosage: 2ND LINE TREATMENT, ACCORDING TO R-ICE REGIME, 1 CYCLE, DURATION : 1 MONTH
     Route: 065
     Dates: start: 201812, end: 201901
  9. ETOPOSIDE [Suspect]
     Active Substance: ETOPOSIDE
     Indication: Diffuse large B-cell lymphoma
     Dosage: 2ND LINE TREATMENT, ACCORDING TO R-ICE REGIME, 1 CYCLE, DURATION : 1 MONTH
     Route: 065
     Dates: start: 201812, end: 201901
  10. LENALIDOMIDE [Suspect]
     Active Substance: LENALIDOMIDE
     Indication: Diffuse large B-cell lymphoma
     Dosage: 5TH LINE TREATMENT,  TOGETHER WITH RITUXIMAB AND DEXAMETHASONE, 5 CYCLES, DURATION : 5 MONTH
     Route: 065
     Dates: start: 201904, end: 201909
  11. GEMCITABINE [Suspect]
     Active Substance: GEMCITABINE
     Indication: Diffuse large B-cell lymphoma
     Dosage: 4 TH LINE TREATMENT, ACCORDING TO R-GDP REGIME, 1 CYCLE, DURATION : 1 MONTH
     Route: 065
     Dates: start: 20190221, end: 201903
  12. CISPLATIN [Suspect]
     Active Substance: CISPLATIN
     Indication: Product used for unknown indication
     Dosage: 4TH LINE TREATMENT, ACCORDING TO R-GDP REGIME, 1 CYCLE, DURATION : 1 MONTH
     Route: 065
     Dates: start: 20190221, end: 201903
  13. DEXAMETHASONE [Suspect]
     Active Substance: DEXAMETHASONE
     Indication: Diffuse large B-cell lymphoma
     Dosage: 4TH LINE TREATMENT, ACCORDING TO R-GDP REGIME, 1 CYCLE, DURATION : 1 MONTH
     Route: 065
     Dates: start: 20190221, end: 201903
  14. DEXAMETHASONE [Suspect]
     Active Substance: DEXAMETHASONE
     Dosage: 5TH LINE TREATMENT, TOGETHER WITH LENALIDOMID AND RITUXIMAB, 5 CYCLES, DURATION : 5 MONTH
     Route: 065
     Dates: start: 201904, end: 201909
  15. MABTHERA [Suspect]
     Active Substance: RITUXIMAB
     Indication: Product used for unknown indication
     Dosage: 4TH LINE TREATMENT, ACCORDING TO R-GDP REGIME, 1 CYCLE, DURATION : 1 MONTH
     Route: 065
     Dates: start: 20190221, end: 201903
  16. MABTHERA [Suspect]
     Active Substance: RITUXIMAB
     Dosage: 2ND LINE TREATMENT, ACCORDING TO R-ICE REGIME, 1 CYCLE, DURATION : 1 MONTH
     Route: 065
     Dates: start: 201812, end: 201901
  17. MABTHERA [Suspect]
     Active Substance: RITUXIMAB
     Dosage: 3RD LINE TREATMENT, ACCORDING TO R-DHAP REGIME, 2 CYCLES, DURATION : 22 DAYS
     Route: 065
     Dates: start: 20190111, end: 20190201
  18. MABTHERA [Suspect]
     Active Substance: RITUXIMAB
     Dosage: 375 MG/M2, QMO (1ST LINE TREATMENT, ACCORDING TO R-CHOP REGIME, 6 CYCLES)
     Route: 065
     Dates: start: 201803, end: 201807
  19. MABTHERA [Suspect]
     Active Substance: RITUXIMAB
     Dosage: 5TH LINE TREATMENT, RITUXIMAB TOGETHER WITH LENALIDOMID AND DEXAMETHASONE, 5 CYCLES, DURATION : 5 MO
     Route: 065
     Dates: start: 201904, end: 201909
  20. IFOSFAMIDE [Suspect]
     Active Substance: IFOSFAMIDE
     Indication: Diffuse large B-cell lymphoma
     Dosage: 2ND LINE TREATMENT, ACCORDING TO R-ICE REGIME, 1 CYCLE, DURATION : 1 MONTH
     Route: 065
     Dates: start: 201812, end: 201901

REACTIONS (2)
  - Neuropathy peripheral [Unknown]
  - Fatigue [Unknown]
